FAERS Safety Report 4506287-9 (Version None)
Quarter: 2004Q4

REPORT INFORMATION
  Report Type: 
  Country: None (occurrence: None)
  Receive Date: 20041025
  Receipt Date: 20040315
  Transmission Date: 20050328
  Serious: Yes (Other)
  Sender: FDA-Public Use
  Company Number: US-JNJFOC-20040100922

PATIENT
  Age: 54 Year
  Sex: Female

DRUGS (9)
  1. REMICADE [Suspect]
     Indication: RHEUMATOID ARTHRITIS
     Dosage: 3 MG/KG, 1 IN 1 TOTAL, INTRAVENOUS;  200 MG, 1 IN 1 TOTAL, INTRAVENOUS;  INTRAVENOUS
     Route: 042
     Dates: end: 20040122
  2. REMICADE [Suspect]
     Indication: RHEUMATOID ARTHRITIS
     Dosage: 3 MG/KG, 1 IN 1 TOTAL, INTRAVENOUS;  200 MG, 1 IN 1 TOTAL, INTRAVENOUS;  INTRAVENOUS
     Route: 042
     Dates: start: 20010101
  3. REMICADE [Suspect]
     Indication: RHEUMATOID ARTHRITIS
     Dosage: 3 MG/KG, 1 IN 1 TOTAL, INTRAVENOUS;  200 MG, 1 IN 1 TOTAL, INTRAVENOUS;  INTRAVENOUS
     Route: 042
     Dates: start: 20021002
  4. METHOTREXATE [Concomitant]
  5. PREDNISONE [Concomitant]
  6. FOLIC ACID [Concomitant]
  7. ACTOS [Concomitant]
  8. PRINIVIL [Concomitant]
  9. ZOLOFT [Concomitant]

REACTIONS (5)
  - BLOOD GLUCOSE INCREASED [None]
  - CARPAL TUNNEL SYNDROME [None]
  - NEUROPATHY PERIPHERAL [None]
  - RENAL FAILURE CHRONIC [None]
  - WEIGHT INCREASED [None]
